FAERS Safety Report 20433688 (Version 1)
Quarter: 2022Q1

REPORT INFORMATION
  Report Type: Spontaneous
  Country: NL (occurrence: NL)
  Receive Date: 20220205
  Receipt Date: 20220205
  Transmission Date: 20220424
  Serious: Yes (Hospitalization)
  Sender: FDA-Public Use
  Company Number: None

PATIENT
  Sex: Male
  Weight: 77 kg

DRUGS (11)
  1. OXALIPLATIN [Suspect]
     Active Substance: OXALIPLATIN
     Indication: Oesophageal adenocarcinoma
     Dosage: 225 MG, QD
     Dates: start: 202112
  2. CAPECITABINE [Suspect]
     Active Substance: CAPECITABINE
     Indication: Oesophageal adenocarcinoma
     Dosage: 2X PER DAY 2000 MG
     Dates: start: 202112
  3. TRASTUZUMAB [Suspect]
     Active Substance: TRASTUZUMAB
     Indication: Oesophageal adenocarcinoma
     Dosage: 1X PER DAY 483 MG
     Dates: start: 202112
  4. NADROPARIN [Concomitant]
     Active Substance: NADROPARIN
     Dosage: INJECTION FLUID, 9500 IU/ML (UNITS PER MILLILITER)
  5. METOCLOPRAMIDE HYDROCHLORIDE [Concomitant]
     Active Substance: METOCLOPRAMIDE HYDROCHLORIDE
     Dosage: INJECTION FLUID, 5 MG/ML (MILLIGRAMS PER MILLILITER)
  6. ACETAMINOPHEN [Concomitant]
     Active Substance: ACETAMINOPHEN
     Dosage: TABLET, 500 MG (MILLIGRAM)
  7. TIOTROPIUM [Concomitant]
     Active Substance: TIOTROPIUM
     Dosage: NEBULIZER SOLUTION, 2.5 G/DOSE (MICROGRAMS PER DOSE)
  8. CEFTRIAXONE [Concomitant]
     Active Substance: CEFTRIAXONE
     Dosage: SOLUTION FOR INFUSION, 2000 MG (MILLIGRAMS)
  9. ASPIRIN [Concomitant]
     Active Substance: ASPIRIN
     Dosage: 80 MG
  10. PANTOPRAZOLE [Concomitant]
     Active Substance: PANTOPRAZOLE
     Dosage: GASTRO-RESISTANT TABLET, 40 MG (MILLIGRAMS)
  11. BECLOMETHASONE\FORMOTEROL [Concomitant]
     Active Substance: BECLOMETHASONE\FORMOTEROL
     Dosage: AEROSOL, 100/6 ?G/DOSIS (MICROGRAM PER DOSIS)

REACTIONS (1)
  - Diarrhoea [Not Recovered/Not Resolved]
